FAERS Safety Report 26040621 (Version 1)
Quarter: 2025Q4

REPORT INFORMATION
  Report Type: Spontaneous
  Country: US (occurrence: None)
  Receive Date: 20251112
  Receipt Date: 20251112
  Transmission Date: 20260118
  Serious: Yes (Death)
  Sender: FDA-CTU
  Company Number: None

PATIENT
  Age: 63 Year
  Sex: Female
  Weight: 64.32 kg

DRUGS (5)
  1. KEYTRUDA [Suspect]
     Active Substance: PEMBROLIZUMAB
     Indication: Breast cancer female
     Dosage: 100 MG  EVERY 21 DAYS INTRAVENOUS ?
     Route: 042
     Dates: start: 20251027, end: 20251112
  2. FARXIGA 5MG TABLETS [Concomitant]
  3. LOPERAMIDE 2MG CAPSULES [Concomitant]
  4. PACLITAXEL 100MG INJ, 1 VIAL [Concomitant]
     Dates: start: 20251027, end: 20251112
  5. DEXAMETHASONE SOD PHOS 10MG/ML INJ [Concomitant]
     Dates: start: 20251027, end: 20251112

REACTIONS (1)
  - Death [None]

NARRATIVE: CASE EVENT DATE: 20251112
